FAERS Safety Report 6807975-1 (Version None)
Quarter: 2010Q2

REPORT INFORMATION
  Report Type: 
  Country: None (occurrence: None)
  Receive Date: 20100629
  Receipt Date: 20090516
  Transmission Date: 20101027
  Serious: No
  Sender: FDA-Public Use
  Company Number: US-PFIZER INC-2009181818

PATIENT
  Sex: Male
  Weight: 90.7 kg

DRUGS (4)
  1. ALPRAZOLAM [Suspect]
     Indication: BIPOLAR DISORDER
     Dosage: 0.5 MG, 3X/DAY
     Dates: start: 20081001, end: 20090304
  2. ALPRAZOLAM [Suspect]
     Indication: ANXIETY
  3. CELEXA [Concomitant]
     Indication: DEPRESSION
     Dosage: UNK
  4. GABAPENTIN [Concomitant]
     Dosage: UNK

REACTIONS (1)
  - DRUG INEFFECTIVE [None]
